FAERS Safety Report 11203238 (Version 2)
Quarter: 2015Q3

REPORT INFORMATION
  Report Type: Spontaneous
  Country: JP (occurrence: JP)
  Receive Date: 20150619
  Receipt Date: 20150710
  Transmission Date: 20151125
  Serious: Yes (Other)
  Sender: FDA-Public Use
  Company Number: US-ASTRAZENECA-2015SE60320

PATIENT
  Age: 56 Year
  Sex: Female

DRUGS (5)
  1. RIZE [Concomitant]
     Active Substance: CLOTIAZEPAM
     Indication: INSOMNIA
     Route: 048
     Dates: start: 20150501, end: 20150508
  2. BLOPRESS [Suspect]
     Active Substance: CANDESARTAN CILEXETIL
     Indication: HYPERTENSION
     Route: 048
     Dates: start: 20150508, end: 20150510
  3. RIZE [Concomitant]
     Active Substance: CLOTIAZEPAM
     Indication: STRESS
     Route: 048
     Dates: start: 20150509
  4. RIZE [Concomitant]
     Active Substance: CLOTIAZEPAM
     Indication: INSOMNIA
     Route: 048
     Dates: start: 20150509
  5. RIZE [Concomitant]
     Active Substance: CLOTIAZEPAM
     Indication: STRESS
     Route: 048
     Dates: start: 20150501, end: 20150508

REACTIONS (2)
  - Road traffic accident [Recovered/Resolved]
  - Loss of consciousness [Recovered/Resolved]

NARRATIVE: CASE EVENT DATE: 20150510
